FAERS Safety Report 25128605 (Version 2)
Quarter: 2025Q3

REPORT INFORMATION
  Report Type: Other
  Country: US (occurrence: US)
  Receive Date: 20250327
  Receipt Date: 20250725
  Transmission Date: 20251020
  Serious: Yes (Hospitalization, Other)
  Sender: ANI
  Company Number: US-ANIPHARMA-016148

PATIENT
  Age: 53 Month
  Sex: Female

DRUGS (12)
  1. TEMOZOLOMIDE [Suspect]
     Active Substance: TEMOZOLOMIDE
     Indication: Medulloblastoma recurrent
     Route: 048
  2. CYCLOPHOSPHAMIDE [Suspect]
     Active Substance: CYCLOPHOSPHAMIDE
     Indication: Medulloblastoma
  3. CISPLATIN [Concomitant]
     Active Substance: CISPLATIN
     Indication: Medulloblastoma
  4. ETOPOSIDE [Concomitant]
     Active Substance: ETOPOSIDE
     Indication: Medulloblastoma
  5. VINCRISTINE [Concomitant]
     Active Substance: VINCRISTINE
     Indication: Medulloblastoma
  6. METHOTREXATE [Concomitant]
     Active Substance: METHOTREXATE
     Indication: Medulloblastoma
  7. CARBOPLATIN [Concomitant]
     Active Substance: CARBOPLATIN
     Indication: Medulloblastoma
  8. THIOTEPA [Concomitant]
     Active Substance: THIOTEPA
     Indication: Medulloblastoma
  9. IRINOTECAN [Concomitant]
     Active Substance: IRINOTECAN
     Indication: Medulloblastoma recurrent
  10. ETOPOSIDE [Concomitant]
     Active Substance: ETOPOSIDE
     Indication: Medulloblastoma
  11. CYCLOPHOSPHAMIDE [Suspect]
     Active Substance: CYCLOPHOSPHAMIDE
     Indication: Medulloblastoma recurrent
  12. ETOPOSIDE [Concomitant]
     Active Substance: ETOPOSIDE
     Indication: Medulloblastoma recurrent
     Route: 048

REACTIONS (5)
  - Septic shock [Unknown]
  - Myelosuppression [Unknown]
  - Infection [Unknown]
  - Febrile neutropenia [Unknown]
  - Sepsis [Unknown]
